FAERS Safety Report 5506601-1 (Version None)
Quarter: 2007Q4

REPORT INFORMATION
  Report Type: 
  Country: None (occurrence: None)
  Receive Date: 20071105
  Receipt Date: 20071023
  Transmission Date: 20080405
  Serious: Yes (Hospitalization)
  Sender: FDA-Public Use
  Company Number: RO-ROCHE-527324

PATIENT
  Age: 68 Year
  Sex: Female

DRUGS (1)
  1. BONIVA [Suspect]
     Indication: OSTEOPOROSIS POSTMENOPAUSAL
     Route: 048
     Dates: start: 20071003, end: 20071003

REACTIONS (2)
  - BACK PAIN [None]
  - CARDIO-RESPIRATORY ARREST [None]
